FAERS Safety Report 8729885 (Version 2)
Quarter: 2013Q1

REPORT INFORMATION
  Report Type: Spontaneous
  Country: US (occurrence: US)
  Receive Date: 20120817
  Receipt Date: 20130321
  Transmission Date: 20140127
  Serious: Yes (Hospitalization, Congenital Anomaly)
  Sender: FDA-Public Use
  Company Number: US-GLAXOSMITHKLINE-A0989774A

PATIENT
  Age: 0 Year
  Sex: Male

DRUGS (1)
  1. PAXIL [Suspect]
     Indication: DEPRESSION
     Route: 064
     Dates: end: 200006

REACTIONS (4)
  - Talipes [Recovering/Resolving]
  - Syndactyly [Unknown]
  - Amniotic band syndrome [Unknown]
  - Foetal exposure during pregnancy [Unknown]
